FAERS Safety Report 7056451-2 (Version None)
Quarter: 2010Q4

REPORT INFORMATION
  Report Type: 
  Country: None (occurrence: None)
  Receive Date: 20101021
  Receipt Date: 20101013
  Transmission Date: 20110411
  Serious: Yes (Other)
  Sender: FDA-Public Use
  Company Number: AR-PFIZER INC-2010130464

PATIENT
  Age: 58 Year
  Sex: Male
  Weight: 88 kg

DRUGS (3)
  1. LIPITOR [Suspect]
     Indication: HYPERCHOLESTEROLAEMIA
     Dosage: 10 MG, 1X/DAY, EVERY DAY
     Route: 048
     Dates: start: 20050101, end: 20100601
  2. LIPITOR [Suspect]
     Dosage: 20 MG, 1X/DAY
     Route: 048
     Dates: start: 20100601, end: 20100901
  3. ENALAPRIL [Concomitant]
     Dosage: UNK
     Route: 048

REACTIONS (3)
  - BLOOD CHOLESTEROL INCREASED [None]
  - DRUG INEFFECTIVE [None]
  - ROTATOR CUFF SYNDROME [None]
